FAERS Safety Report 22522636 (Version 8)
Quarter: 2025Q1

REPORT INFORMATION
  Report Type: Report from Study
  Country: US (occurrence: US)
  Receive Date: 20230605
  Receipt Date: 20250113
  Transmission Date: 20250409
  Serious: Yes (Other)
  Sender: NOVARTIS
  Company Number: US-002147023-NVSC2023US126636

PATIENT
  Age: 54 Year
  Sex: Female

DRUGS (4)
  1. KESIMPTA [Suspect]
     Active Substance: OFATUMUMAB
     Indication: Multiple sclerosis
     Dosage: 20 MG, QMO
     Route: 058
     Dates: start: 20230427, end: 20230531
  2. KESIMPTA [Suspect]
     Active Substance: OFATUMUMAB
     Dosage: 20 MG, QMO
     Route: 058
     Dates: end: 20231113
  3. KESIMPTA [Suspect]
     Active Substance: OFATUMUMAB
     Dosage: 20 MG, QMO
     Route: 058
     Dates: end: 20240215
  4. KESIMPTA [Suspect]
     Active Substance: OFATUMUMAB
     Dosage: 20 MG, QMO
     Route: 058
     Dates: start: 20241107

REACTIONS (15)
  - Craniofacial fracture [Not Recovered/Not Resolved]
  - Fractured coccyx [Not Recovered/Not Resolved]
  - Burning sensation [Not Recovered/Not Resolved]
  - Lethargy [Not Recovered/Not Resolved]
  - Paraesthesia [Not Recovered/Not Resolved]
  - Hypoaesthesia [Not Recovered/Not Resolved]
  - Blepharospasm [Not Recovered/Not Resolved]
  - Muscle twitching [Not Recovered/Not Resolved]
  - Fatigue [Not Recovered/Not Resolved]
  - Headache [Not Recovered/Not Resolved]
  - Electric shock sensation [Not Recovered/Not Resolved]
  - Bone pain [Not Recovered/Not Resolved]
  - Fall [Not Recovered/Not Resolved]
  - Osteoporosis [Not Recovered/Not Resolved]
  - Dysarthria [Not Recovered/Not Resolved]

NARRATIVE: CASE EVENT DATE: 20230427
